FAERS Safety Report 6690107-0 (Version None)
Quarter: 2010Q2

REPORT INFORMATION
  Report Type: 
  Country: None (occurrence: None)
  Receive Date: 20100421
  Receipt Date: 20100415
  Transmission Date: 20101027
  Serious: Yes (Other)
  Sender: FDA-Public Use
  Company Number: PHEH2010US03052

PATIENT
  Sex: Male
  Weight: 86.621 kg

DRUGS (9)
  1. RECLAST [Suspect]
     Indication: OSTEOPOROSIS
     Dosage: 5 MG IV YEARLY
     Route: 042
     Dates: start: 20100308
  2. VALPROATE BISMUTH [Concomitant]
     Dosage: 500 MG, BID
  3. ZONISAMIDE [Concomitant]
     Dosage: 200 MG, BID
  4. LOPRESSOR [Concomitant]
     Dosage: 25 MG, BID
     Route: 048
  5. PLAVIX [Concomitant]
     Dosage: 75 MG, QHS
     Route: 048
  6. AMBIEN [Concomitant]
     Dosage: 10 MG, QHS
     Route: 048
  7. DEPAKOTE [Concomitant]
     Dosage: 500 MG QAM, 750 MG PM
     Route: 048
  8. ASPIRIN [Concomitant]
     Dosage: 81 MG, QD
  9. VITAMIN D3 [Concomitant]
     Dosage: 400 IU, TID

REACTIONS (8)
  - AMNESIA [None]
  - ASTHENIA [None]
  - CONFUSIONAL STATE [None]
  - DYSKINESIA [None]
  - GRAND MAL CONVULSION [None]
  - LETHARGY [None]
  - LOSS OF CONSCIOUSNESS [None]
  - SOMNOLENCE [None]
